FAERS Safety Report 23990385 (Version 2)
Quarter: 2024Q3

REPORT INFORMATION
  Report Type: Spontaneous
  Country: US (occurrence: US)
  Receive Date: 20240619
  Receipt Date: 20240912
  Transmission Date: 20241016
  Serious: Yes (Other)
  Sender: BRISTOL MYERS SQUIBB
  Company Number: US-BRISTOL-MYERS SQUIBB COMPANY-2024-093319

PATIENT
  Age: 69 Year
  Sex: Female

DRUGS (2)
  1. SPRYCEL [Suspect]
     Active Substance: DASATINIB
     Indication: Chronic myeloid leukaemia
     Route: 048
     Dates: start: 202405
  2. SPRYCEL [Suspect]
     Active Substance: DASATINIB
     Route: 048
     Dates: start: 202405

REACTIONS (19)
  - Fatigue [Recovering/Resolving]
  - Neuropathy peripheral [Unknown]
  - Eye oedema [Unknown]
  - Rash [Unknown]
  - Neutropenia [Unknown]
  - Thrombocytopenia [Unknown]
  - Myalgia [Unknown]
  - Oedema [Unknown]
  - Pain [Unknown]
  - Palmar-plantar erythrodysaesthesia syndrome [Unknown]
  - Madarosis [Unknown]
  - Alopecia [Unknown]
  - Poor venous access [Unknown]
  - Burning sensation [Unknown]
  - Skin atrophy [Unknown]
  - Rash vesicular [Unknown]
  - White blood cell count increased [Unknown]
  - Arthritis [Unknown]
  - Inflammation [Unknown]
